FAERS Safety Report 21015863 (Version 1)
Quarter: 2022Q2

REPORT INFORMATION
  Report Type: Spontaneous
  Country: CN (occurrence: CN)
  Receive Date: 20220628
  Receipt Date: 20220628
  Transmission Date: 20220721
  Serious: Yes (Hospitalization, Other)
  Sender: FDA-Public Use
  Company Number: None

PATIENT
  Age: 56 Year
  Sex: Female

DRUGS (4)
  1. CYCLOPHOSPHAMIDE [Suspect]
     Active Substance: CYCLOPHOSPHAMIDE
     Indication: Breast cancer female
     Dosage: 800 MG, QD, POWDER INJECTION,CYCLOPHOSPHAMIDE FOR INJECTION 800 MG +  NS250ML
     Route: 041
     Dates: start: 20220605, end: 20220605
  2. SODIUM CHLORIDE [Suspect]
     Active Substance: SODIUM CHLORIDE
     Indication: Medication dilution
     Dosage: 250 ML, QD,CYCLOPHOSPHAMIDE FOR INJECTION 800 MG +  NS250ML
     Route: 041
     Dates: start: 20220605, end: 20220605
  3. SODIUM CHLORIDE [Suspect]
     Active Substance: SODIUM CHLORIDE
     Dosage: 250 ML, QD,EPIRUBICIN HYDROCHLORIDE FOR INJECTION 120 MG + NS 250 ML
     Route: 041
     Dates: start: 20220605, end: 20220605
  4. EPIRUBICIN HYDROCHLORIDE [Suspect]
     Active Substance: EPIRUBICIN HYDROCHLORIDE
     Indication: Breast cancer female
     Dosage: 120 MG, QD,EPIRUBICIN HYDROCHLORIDE FOR INJECTION 120 MG + NS 250 ML
     Route: 041
     Dates: start: 20220605, end: 20220605

REACTIONS (1)
  - White blood cell count decreased [Recovered/Resolved]

NARRATIVE: CASE EVENT DATE: 20220613
